FAERS Safety Report 16938103 (Version 13)
Quarter: 2025Q2

REPORT INFORMATION
  Report Type: Report from Study
  Country: US (occurrence: US)
  Receive Date: 20191019
  Receipt Date: 20250410
  Transmission Date: 20250716
  Serious: Yes (Hospitalization, Other)
  Sender: TAKEDA
  Company Number: US-SHIRE-US201935104

PATIENT
  Sex: Female
  Weight: 79 kg

DRUGS (24)
  1. HUMAN IMMUNOGLOBULIN G [Suspect]
     Active Substance: HUMAN IMMUNOGLOBULIN G
     Indication: Immunodeficiency common variable
     Dosage: 40 GRAM, Q4WEEKS
     Dates: start: 20181219
  2. HUMAN IMMUNOGLOBULIN G [Suspect]
     Active Substance: HUMAN IMMUNOGLOBULIN G
     Dosage: 40 GRAM, Q4WEEKS
  3. BENADRYL [Suspect]
     Active Substance: DIPHENHYDRAMINE HYDROCHLORIDE
     Indication: Product used for unknown indication
  4. ACETAMINOPHEN [Concomitant]
     Active Substance: ACETAMINOPHEN
  5. SULFASALAZINE [Concomitant]
     Active Substance: SULFASALAZINE
  6. EPINEPHRINE [Concomitant]
     Active Substance: EPINEPHRINE
  7. SODIUM CHLORIDE [Concomitant]
     Active Substance: SODIUM CHLORIDE
  8. PROZAC [Concomitant]
     Active Substance: FLUOXETINE HYDROCHLORIDE
  9. DIPHENHYDRAMINE HYDROCHLORIDE [Concomitant]
     Active Substance: DIPHENHYDRAMINE HYDROCHLORIDE
  10. PLAQUENIL [Concomitant]
     Active Substance: HYDROXYCHLOROQUINE SULFATE
  11. FAMOTIDINE [Concomitant]
     Active Substance: FAMOTIDINE
  12. METHOTREXATE [Concomitant]
     Active Substance: METHOTREXATE
  13. LIDOCAINE [Concomitant]
     Active Substance: LIDOCAINE
  14. FOLIC ACID [Concomitant]
     Active Substance: FOLIC ACID
  15. MONTELUKAST SODIUM [Concomitant]
     Active Substance: MONTELUKAST SODIUM
  16. MONTELUKAST [Concomitant]
     Active Substance: MONTELUKAST
  17. SODIUM CHLORIDE [Concomitant]
     Active Substance: SODIUM CHLORIDE
  18. HEPARIN [Concomitant]
     Active Substance: HEPARIN SODIUM
  19. ZITHROMAX [Concomitant]
     Active Substance: AZITHROMYCIN DIHYDRATE
  20. PREDNISONE [Concomitant]
     Active Substance: PREDNISONE
  21. ZANTAC [Concomitant]
     Active Substance: RANITIDINE HYDROCHLORIDE
  22. RANITIDINE [Concomitant]
     Active Substance: RANITIDINE
  23. OTREXUP [Concomitant]
     Active Substance: METHOTREXATE
  24. BANOPHEN [Concomitant]
     Active Substance: DIPHENHYDRAMINE HYDROCHLORIDE

REACTIONS (18)
  - Hiatus hernia strangulated [Unknown]
  - Cataract [Unknown]
  - Multiple allergies [Unknown]
  - Seasonal allergy [Unknown]
  - Gastrooesophageal reflux disease [Unknown]
  - Chronic sinusitis [Unknown]
  - Ulcer [Unknown]
  - Gastrointestinal disorder [Unknown]
  - Food allergy [Unknown]
  - Weight decreased [Unknown]
  - Mobility decreased [Unknown]
  - Feeding disorder [Unknown]
  - Infusion related reaction [Unknown]
  - Drug hypersensitivity [Unknown]
  - Somnolence [Unknown]
  - Blood pressure increased [Unknown]
  - Malaise [Unknown]
  - Vomiting [Unknown]
